FAERS Safety Report 16715892 (Version 1)
Quarter: 2019Q4

REPORT INFORMATION
  Report Type: Spontaneous
  Country: US (occurrence: US)
  Receive Date: 20190817
  Receipt Date: 20190817
  Transmission Date: 20200122
  Serious: No
  Sender: FDA-Public Use
  Company Number: None

PATIENT
  Age: 37 Year
  Sex: Female
  Weight: 68.85 kg

DRUGS (1)
  1. DORAL [Suspect]
     Active Substance: QUAZEPAM
     Indication: SLEEP DISORDER
     Dosage: ?          QUANTITY:15 TABLET(S);?
     Route: 048

REACTIONS (2)
  - Cough [None]
  - Dysphonia [None]

NARRATIVE: CASE EVENT DATE: 20190814
